FAERS Safety Report 18726620 (Version 6)
Quarter: 2022Q1

REPORT INFORMATION
  Report Type: Spontaneous
  Country: AT (occurrence: AT)
  Receive Date: 20210112
  Receipt Date: 20220218
  Transmission Date: 20220423
  Serious: Yes (Other)
  Sender: FDA-Public Use
  Company Number: AT-002147023-NVSC2020AT344193

PATIENT
  Age: 38 Year
  Sex: Female

DRUGS (1)
  1. AIMOVIG [Suspect]
     Active Substance: ERENUMAB-AOOE
     Indication: Product used for unknown indication
     Dosage: 70 MILLIGRAM, QMO
     Route: 058
     Dates: start: 20201222

REACTIONS (4)
  - Pregnancy on contraceptive [Unknown]
  - Normal newborn [Unknown]
  - Delivery [Unknown]
  - Maternal exposure during pregnancy [Unknown]
